FAERS Safety Report 8597541-2 (Version None)
Quarter: 2012Q3

REPORT INFORMATION
  Report Type: 
  Country: None (occurrence: None)
  Receive Date: 20120802
  Receipt Date: 20120723
  Transmission Date: 20120928
  Serious: Yes (Death, Other)
  Sender: FDA-Public Use
  Company Number: 2012P1051324

PATIENT

DRUGS (10)
  1. DIHYDROCODEINE BITARTRATE INJ [Suspect]
     Indication: COMPLETED SUICIDE
  2. ZOPICLONE (NO PREF. NAME) [Suspect]
     Indication: COMPLETED SUICIDE
  3. NORDIAZEPAM (NO PREF. NAME) [Suspect]
     Indication: COMPLETED SUICIDE
  4. OXAZEPAM [Suspect]
     Indication: COMPLETED SUICIDE
  5. ALCOHOL (NO PREF. NAME) [Suspect]
  6. CARISOPRODOL (NO PREF. NAME) [Suspect]
     Indication: COMPLETED SUICIDE
  7. HYDROCODONE BITARTRATE [Suspect]
     Indication: COMPLETED SUICIDE
  8. MEPROBAMATE [Suspect]
     Indication: COMPLETED SUICIDE
  9. ... [Concomitant]
     Indication: COMPLETED SUICIDE
  10. DIAZEPAM [Suspect]
     Indication: COMPLETED SUICIDE

REACTIONS (1)
  - COMPLETED SUICIDE [None]
